FAERS Safety Report 4911916-1 (Version None)
Quarter: 2006Q1

REPORT INFORMATION
  Report Type: 
  Country: None (occurrence: None)
  Receive Date: 20060215
  Receipt Date: 20051214
  Transmission Date: 20060701
  Serious: Yes (Disabling)
  Sender: FDA-Public Use
  Company Number: JP-BRISTOL-MYERS SQUIBB COMPANY-13214499

PATIENT
  Age: 48 Year
  Sex: Female

DRUGS (7)
  1. TAXOL [Suspect]
     Indication: BREAST CANCER
     Route: 042
     Dates: start: 20050307, end: 20050531
  2. CYCLOPHOSPHAMIDE [Suspect]
     Indication: BREAST CANCER
     Route: 042
     Dates: start: 20041129, end: 20050201
  3. EPIRUBICIN [Suspect]
     Indication: BREAST CANCER
     Route: 042
     Dates: start: 20041129, end: 20050201
  4. FAMOTIDINE [Concomitant]
     Route: 042
     Dates: start: 20050507, end: 20050531
  5. CHLORPHENIRAMINE MALEATE [Concomitant]
     Route: 048
     Dates: start: 20050507, end: 20050531
  6. DEXAMETHASONE SODIUM PHOSPHATE [Concomitant]
     Route: 042
     Dates: start: 20050507, end: 20050531
  7. RADIOTHERAPY [Concomitant]
     Indication: BREAST CANCER
     Dates: start: 20050705, end: 20050801

REACTIONS (2)
  - HYPOAESTHESIA [None]
  - VENOUS THROMBOSIS LIMB [None]
